FAERS Safety Report 25253050 (Version 3)
Quarter: 2025Q3

REPORT INFORMATION
  Report Type: Spontaneous
  Country: EU (occurrence: EU)
  Receive Date: 20250430
  Receipt Date: 20250819
  Transmission Date: 20251020
  Serious: Yes (Hospitalization)
  Sender: ADC THERAPEUTICS
  Company Number: EU-BIOVITRUM-2025-IT-003885

PATIENT
  Age: 69 Year
  Sex: Male

DRUGS (18)
  1. ZYNLONTA [Suspect]
     Active Substance: LONCASTUXIMAB TESIRINE-LPYL
     Indication: Product used for unknown indication
     Dosage: 10 MILLIGRAM, Q3WK
     Route: 042
     Dates: start: 202408, end: 202408
  2. ZYNLONTA [Suspect]
     Active Substance: LONCASTUXIMAB TESIRINE-LPYL
     Dosage: 10 MILLIGRAM, Q3WK
     Route: 042
  3. ZYNLONTA [Suspect]
     Active Substance: LONCASTUXIMAB TESIRINE-LPYL
     Dosage: 5.63 MILLIGRAM FROM CYCLE 3 ON (21-DAYS CYCLES EV) AS PER PROTOCOL, Q3WK
     Route: 042
     Dates: start: 20241121, end: 20241121
  4. ZYNLONTA [Suspect]
     Active Substance: LONCASTUXIMAB TESIRINE-LPYL
     Route: 042
     Dates: start: 20241219, end: 20241219
  5. NALOXONE HYDROCHLORIDE\OXYCODONE HYDROCHLORIDE [Concomitant]
     Active Substance: NALOXONE HYDROCHLORIDE\OXYCODONE HYDROCHLORIDE
     Indication: Product used for unknown indication
  6. PANTOPRAZOLE [Concomitant]
     Active Substance: PANTOPRAZOLE
     Indication: Product used for unknown indication
     Route: 042
  7. ACYCLOVIR [Concomitant]
     Active Substance: ACYCLOVIR
     Indication: Product used for unknown indication
  8. BACTRIM [Concomitant]
     Active Substance: SULFAMETHOXAZOLE\TRIMETHOPRIM
     Indication: Product used for unknown indication
  9. ALLOPURINOL [Concomitant]
     Active Substance: ALLOPURINOL
     Indication: Product used for unknown indication
  10. PREGABALIN [Concomitant]
     Active Substance: PREGABALIN
     Indication: Product used for unknown indication
  11. GRANULOCYTE COLONY-STIMULATING FACTOR NOS [Concomitant]
     Active Substance: GRANULOCYTE COLONY-STIMULATING FACTOR NOS
     Indication: Product used for unknown indication
  12. METFORMIN HYDROCHLORIDE [Concomitant]
     Active Substance: METFORMIN HYDROCHLORIDE
     Indication: Product used for unknown indication
  13. INSULIN GLARGINE\LIXISENATIDE [Concomitant]
     Active Substance: INSULIN GLARGINE\LIXISENATIDE
     Indication: Product used for unknown indication
  14. FUROSEMIDE\SPIRONOLACTONE [Concomitant]
     Active Substance: FUROSEMIDE\SPIRONOLACTONE
     Indication: Product used for unknown indication
  15. METOPROLOL [Concomitant]
     Active Substance: METOPROLOL
     Indication: Product used for unknown indication
  16. FENOFIBRATE [Concomitant]
     Active Substance: FENOFIBRATE
     Indication: Product used for unknown indication
  17. EDOXABAN TOSYLATE [Concomitant]
     Active Substance: EDOXABAN TOSYLATE
     Indication: Product used for unknown indication
     Dosage: 1 CAPSULE/DAY
  18. ATORVASTATIN [Concomitant]
     Active Substance: ATORVASTATIN
     Indication: Product used for unknown indication

REACTIONS (2)
  - Infection [Recovered/Resolved]
  - Erythema [Recovered/Resolved]

NARRATIVE: CASE EVENT DATE: 20241204
